FAERS Safety Report 7118593-2 (Version None)
Quarter: 2010Q4

REPORT INFORMATION
  Report Type: 
  Country: None (occurrence: None)
  Receive Date: 20101027
  Receipt Date: 20090914
  Transmission Date: 20110411
  Serious: Yes (Hospitalization)
  Sender: FDA-Public Use
  Company Number: 001711

PATIENT
  Age: 76 Year
  Sex: Female

DRUGS (1)
  1. CARBIDOPA AND LEVODOPA [Suspect]
     Indication: PARKINSON'S DISEASE
     Dosage: (DISCONTINUED 4 MONTHS PRIOR TO ADMISSION)

REACTIONS (2)
  - DYSPNOEA [None]
  - HALLUCINATION, VISUAL [None]
